FAERS Safety Report 13729193 (Version 2)
Quarter: 2017Q4

REPORT INFORMATION
  Report Type: Spontaneous
  Country: US (occurrence: US)
  Receive Date: 20170707
  Receipt Date: 20171128
  Transmission Date: 20180320
  Serious: Yes (Other)
  Sender: FDA-Public Use
  Company Number: US-ASTRAZENECA-2017SE67865

PATIENT
  Age: 54 Year
  Sex: Female
  Weight: 118.4 kg

DRUGS (38)
  1. KETOROLAC [Concomitant]
     Active Substance: KETOROLAC\KETOROLAC TROMETHAMINE
     Dosage: 10.0MG UNKNOWN
     Dates: start: 20021010
  2. PLAVIX [Concomitant]
     Active Substance: CLOPIDOGREL BISULFATE
     Dosage: 75.0MG UNKNOWN
     Dates: start: 20041025
  3. LISINOPRIL. [Concomitant]
     Active Substance: LISINOPRIL
     Dosage: 20.0MG UNKNOWN
     Dates: start: 20080827
  4. FUROSEMIDE. [Concomitant]
     Active Substance: FUROSEMIDE
     Dosage: 40.0MG UNKNOWN
     Dates: start: 20020904
  5. SINGULAIR [Concomitant]
     Active Substance: MONTELUKAST SODIUM
     Dosage: 10.0MG UNKNOWN
     Dates: start: 20080318
  6. DIAZEPAM. [Concomitant]
     Active Substance: DIAZEPAM
     Dates: start: 20170327
  7. GLIPIZIDE. [Concomitant]
     Active Substance: GLIPIZIDE
     Dosage: 10.0MG UNKNOWN
     Dates: start: 20051215
  8. LORATADINE. [Concomitant]
     Active Substance: LORATADINE
     Dosage: 10.0MG UNKNOWN
     Dates: start: 20081015
  9. PREVACID [Suspect]
     Active Substance: LANSOPRAZOLE
     Indication: GASTRIC PH DECREASED
     Dosage: 30.0MG UNKNOWN
     Route: 048
     Dates: start: 20170524
  10. METFORMIN HYDROCHLORIDE. [Concomitant]
     Active Substance: METFORMIN HYDROCHLORIDE
     Dosage: 500.0MG UNKNOWN
     Dates: start: 20021216
  11. AVANDAMET [Concomitant]
     Active Substance: METFORMIN HYDROCHLORIDE\ROSIGLITAZONE MALEATE
     Dosage: 4/550 MG
     Dates: start: 20031031
  12. PREDNISONE. [Concomitant]
     Active Substance: PREDNISONE
     Dosage: 10.0MG UNKNOWN
     Dates: start: 20040413
  13. CYCLOBENZAPRINE. [Concomitant]
     Active Substance: CYCLOBENZAPRINE
     Dosage: 10.0MG UNKNOWN
     Dates: start: 20051102
  14. JANUVIA [Concomitant]
     Active Substance: SITAGLIPTIN PHOSPHATE
     Dosage: 100.0MG UNKNOWN
     Dates: start: 20090601
  15. GABAPENTIN. [Concomitant]
     Active Substance: GABAPENTIN
     Dates: start: 20170524
  16. PREVACID [Suspect]
     Active Substance: LANSOPRAZOLE
     Indication: GASTRIC PH DECREASED
     Dosage: 30.0MG UNKNOWN
     Route: 048
     Dates: start: 20040413
  17. TRAMADOL HYDROCHLORIDE. [Concomitant]
     Active Substance: TRAMADOL HYDROCHLORIDE
     Dosage: 50.0MG UNKNOWN
     Dates: start: 20020904
  18. SKELAXIN [Concomitant]
     Active Substance: METAXALONE
     Dosage: 400.0MG UNKNOWN
     Dates: start: 20021119
  19. BEXTRA [Concomitant]
     Active Substance: VALDECOXIB
     Dosage: 20.0MG UNKNOWN
     Dates: start: 20021212
  20. ATENOLOL. [Concomitant]
     Active Substance: ATENOLOL
     Dates: start: 20170524
  21. PREVACID [Suspect]
     Active Substance: LANSOPRAZOLE
     Indication: GASTRIC PH DECREASED
     Route: 048
     Dates: start: 2004, end: 2016
  22. TEQUIN [Concomitant]
     Active Substance: GATIFLOXACIN
     Dosage: 400.0MG UNKNOWN
     Dates: start: 20040413
  23. NEXIUM [Suspect]
     Active Substance: ESOMEPRAZOLE MAGNESIUM
     Indication: GASTRIC PH DECREASED
     Dosage: 40.0MG UNKNOWN
     Route: 048
     Dates: start: 20081020
  24. NEXIUM [Suspect]
     Active Substance: ESOMEPRAZOLE MAGNESIUM
     Indication: GASTRIC PH DECREASED
     Dosage: 40.0MG UNKNOWN
     Route: 048
     Dates: start: 20170524
  25. HYDROCODONE BITARTRATE AND ACETAMINOPHEN [Concomitant]
     Active Substance: ACETAMINOPHEN\HYDROCODONE BITARTRATE
     Dosage: 10/650
     Dates: start: 20021119
  26. ALLOPURINOL. [Concomitant]
     Active Substance: ALLOPURINOL
     Dosage: 300.0MG UNKNOWN
     Dates: start: 20021212
  27. XENICAL [Concomitant]
     Active Substance: ORLISTAT
     Dosage: 120.0MG UNKNOWN
     Dates: start: 20030731
  28. CLARINEX [Concomitant]
     Active Substance: DESLORATADINE
     Dosage: 5.0MG UNKNOWN
     Dates: start: 20030926
  29. GLIPIZIDE. [Concomitant]
     Active Substance: GLIPIZIDE
     Dosage: 5.0MG UNKNOWN
     Dates: start: 20040413
  30. FLUCONAZOLE. [Concomitant]
     Active Substance: FLUCONAZOLE
     Dosage: 150.0MG UNKNOWN
     Dates: start: 20041126
  31. CEFUROXIME. [Concomitant]
     Active Substance: CEFUROXIME
     Dosage: 500.0MG UNKNOWN
     Dates: start: 20100111
  32. TIZANIDINE HYDROCHLORIDE. [Concomitant]
     Active Substance: TIZANIDINE HYDROCHLORIDE
     Dates: start: 20170327
  33. LEVOTHYROXINE SODIUM. [Concomitant]
     Active Substance: LEVOTHYROXINE SODIUM
     Dates: start: 20170524
  34. NEXIUM [Suspect]
     Active Substance: ESOMEPRAZOLE MAGNESIUM
     Indication: GASTRIC PH DECREASED
     Route: 048
     Dates: start: 2004, end: 2016
  35. LEVAQUIN [Concomitant]
     Active Substance: LEVOFLOXACIN
     Dosage: 500.0MG UNKNOWN
     Dates: start: 20031001
  36. GLIMEPIRIDE. [Concomitant]
     Active Substance: GLIMEPIRIDE
     Dosage: 4 MG 100
     Dates: start: 20051201
  37. COLCHICINE. [Concomitant]
     Active Substance: COLCHICINE
     Dosage: 0.6MG UNKNOWN
     Dates: start: 20080818
  38. BUMETANIDE. [Concomitant]
     Active Substance: BUMETANIDE
     Dosage: 1.0MG UNKNOWN
     Dates: start: 20090601

REACTIONS (5)
  - Chronic kidney disease [Unknown]
  - Tubulointerstitial nephritis [Unknown]
  - Renal failure [Unknown]
  - Acute kidney injury [Unknown]
  - End stage renal disease [Unknown]

NARRATIVE: CASE EVENT DATE: 20111220
